FAERS Safety Report 8628296 (Version 4)
Quarter: 2012Q4

REPORT INFORMATION
  Report Type: 
  Country: US (occurrence: US)
  Receive Date: 20120621
  Receipt Date: 20121022
  Transmission Date: 20130627
  Serious: Yes (Hospitalization)
  Sender: FDA-Public Use
  Company Number: PHEH2012US012250

PATIENT
  Sex: Female

DRUGS (8)
  1. TASIGNA [Suspect]
     Indication: CHRONIC MYELOID LEUKAEMIA
     Dosage: 300 mg, BID
     Route: 048
     Dates: start: 20120426
  2. CELEXA [Interacting]
  3. ZOLOFT [Concomitant]
     Dosage: 1 DF, UNK
     Route: 048
     Dates: start: 20120621
  4. TYLENOL ES [Concomitant]
  5. ALLEGRA [Concomitant]
     Dosage: 60 mg, QD
     Route: 048
  6. CRESTOR [Concomitant]
     Dosage: 10 mg, QD
     Route: 048
  7. PROPRANOLOL [Concomitant]
     Dosage: 80 mg, QD
     Route: 048
  8. XANAX [Concomitant]
     Dosage: 0.25 mg, TID/PRN
     Route: 048
     Dates: start: 20120803

REACTIONS (3)
  - Pleural effusion [Unknown]
  - Pain [Unknown]
  - Drug interaction [Unknown]
